FAERS Safety Report 14983033 (Version 1)
Quarter: 2018Q2

REPORT INFORMATION
  Report Type: Spontaneous
  Country: US (occurrence: US)
  Receive Date: 20180515
  Receipt Date: 20180515
  Transmission Date: 20180711
  Serious: Yes (Life-Threatening, Hospitalization, Disabling)
  Sender: FDA-Public Use
  Company Number: None

PATIENT
  Age: 52 Year
  Sex: Female
  Weight: 117.93 kg

DRUGS (5)
  1. IPRATROPIUM BROMIDE. [Concomitant]
     Active Substance: IPRATROPIUM BROMIDE
  2. ATENOLOL. [Concomitant]
     Active Substance: ATENOLOL
  3. NORCO [Concomitant]
     Active Substance: ACETAMINOPHEN\HYDROCODONE BITARTRATE
  4. LEVAQUIN [Suspect]
     Active Substance: LEVOFLOXACIN
     Indication: PNEUMONIA
     Dosage: 5 PILLS, 2 IV  BASGS ER IV MOUTH
     Dates: start: 20100107, end: 20100113
  5. VENTOLIN (HFA) [Concomitant]

REACTIONS (4)
  - Electrocardiogram QT prolonged [None]
  - Tendon rupture [None]
  - Psychotic disorder [None]
  - Muscle rupture [None]

NARRATIVE: CASE EVENT DATE: 20100107
